FAERS Safety Report 7468280-6 (Version None)
Quarter: 2011Q2

REPORT INFORMATION
  Report Type: 
  Country: None (occurrence: None)
  Receive Date: 20110509
  Receipt Date: 20110503
  Transmission Date: 20111010
  Serious: Yes (Life-Threatening)
  Sender: FDA-Public Use
  Company Number: FR-ASTRAZENECA-2011SE15021

PATIENT
  Age: 55 Year
  Sex: Male

DRUGS (9)
  1. HYPNOMIDATE [Suspect]
     Indication: ANAESTHESIA
     Route: 042
     Dates: start: 20110124, end: 20110124
  2. ATENOLOL [Concomitant]
  3. PROCORALAN [Concomitant]
  4. DIPRIVAN [Suspect]
     Indication: ANAESTHESIA
     Route: 042
     Dates: start: 20110124, end: 20110124
  5. KETAMINE HCL [Suspect]
     Indication: ANAESTHESIA
     Route: 042
     Dates: start: 20110124, end: 20110124
  6. CELOCURINE [Suspect]
     Indication: ANAESTHESIA
     Route: 042
     Dates: start: 20110124, end: 20110124
  7. NIMBEX [Suspect]
     Route: 042
     Dates: start: 20110124, end: 20110124
  8. RAMIPRIL [Concomitant]
  9. SUFENTANIL CITRATE [Suspect]
     Route: 042
     Dates: start: 20110124, end: 20110124

REACTIONS (5)
  - CIRCULATORY COLLAPSE [None]
  - OXYGEN SATURATION [None]
  - SHOCK [None]
  - BRONCHOSPASM [None]
  - RASH [None]
